FAERS Safety Report 20744810 (Version 1)
Quarter: 2022Q2

REPORT INFORMATION
  Report Type: Spontaneous
  Country: US (occurrence: US)
  Receive Date: 20220425
  Receipt Date: 20220425
  Transmission Date: 20220721
  Serious: Yes (Life-Threatening)
  Sender: FDA-Public Use
  Company Number: US-PFIZER INC-202200583226

PATIENT
  Age: 64 Year
  Sex: Female
  Weight: 102.06 kg

DRUGS (1)
  1. XANAX [Suspect]
     Active Substance: ALPRAZOLAM
     Dosage: UNK

REACTIONS (4)
  - Product dispensing error [Unknown]
  - Illness [Not Recovered/Not Resolved]
  - Irritability [Unknown]
  - Panic reaction [Unknown]

NARRATIVE: CASE EVENT DATE: 20211201
